FAERS Safety Report 15362576 (Version 2)
Quarter: 2018Q4

REPORT INFORMATION
  Report Type: Report from Study
  Country: US (occurrence: US)
  Receive Date: 20180907
  Receipt Date: 20181006
  Transmission Date: 20190204
  Serious: Yes (Disabling, Other)
  Sender: FDA-Public Use
  Company Number: US-AMGEN-USASL2018122585

PATIENT
  Age: 33 Year
  Sex: Male

DRUGS (5)
  1. VITAMIN E [Concomitant]
     Active Substance: .ALPHA.-TOCOPHEROL
     Indication: PRODUCT USED FOR UNKNOWN INDICATION
     Dosage: UNK
     Route: 065
  2. CINNAMON. [Concomitant]
     Active Substance: CINNAMON
     Indication: PRODUCT USED FOR UNKNOWN INDICATION
     Dosage: UNK
     Route: 065
  3. AIMOVIG [Suspect]
     Active Substance: ERENUMAB-AOOE
     Indication: MIGRAINE WITHOUT AURA
     Dosage: 70 MG, QMO
     Route: 058
     Dates: start: 20180712, end: 20180812
  4. AIMOVIG [Suspect]
     Active Substance: ERENUMAB-AOOE
     Indication: CLUSTER HEADACHE
  5. VERAPAMIL [Concomitant]
     Active Substance: VERAPAMIL HYDROCHLORIDE
     Dosage: 200 MG, QD (HAD TO CUT FROM 200 MG TO 120 MG THEN 120 MG TO 2 40 MG PER DAY AND NOW 10 MG PER DAY)

REACTIONS (20)
  - C-reactive protein increased [Recovering/Resolving]
  - Intestinal obstruction [Unknown]
  - Therapeutic response shortened [Unknown]
  - Swelling [Unknown]
  - Red blood cell sedimentation rate increased [Recovering/Resolving]
  - Red blood cell count decreased [Unknown]
  - Oxygen saturation decreased [Unknown]
  - Pain [Unknown]
  - Alopecia [Unknown]
  - Flatulence [Unknown]
  - Platelet count decreased [Recovering/Resolving]
  - Burning sensation [Unknown]
  - Hypoaesthesia [Unknown]
  - Fibromyalgia [Recovering/Resolving]
  - Vomiting [Unknown]
  - Weight decreased [Not Recovered/Not Resolved]
  - Adverse event [Unknown]
  - Hypotension [Unknown]
  - Cardiovascular disorder [Recovered/Resolved]
  - Influenza like illness [Not Recovered/Not Resolved]

NARRATIVE: CASE EVENT DATE: 2018
